FAERS Safety Report 19874614 (Version 2)
Quarter: 2021Q4

REPORT INFORMATION
  Report Type: Report from Study
  Country: US (occurrence: US)
  Receive Date: 20210922
  Receipt Date: 20211004
  Transmission Date: 20220303
  Serious: Yes (Hospitalization)
  Sender: FDA-Public Use
  Company Number: US-REGENERON PHARMACEUTICALS, INC.-2021-86142

PATIENT

DRUGS (19)
  1. UBAMATAMAB [Suspect]
     Active Substance: UBAMATAMAB
     Indication: Ovarian cancer
     Dosage: 1 MG, DOSE ESCALATION
     Route: 042
     Dates: start: 20210811, end: 20210811
  2. UBAMATAMAB [Suspect]
     Active Substance: UBAMATAMAB
     Dosage: 20 MG, DOSE ESCALATION
     Route: 042
     Dates: start: 20210817, end: 20210818
  3. UBAMATAMAB [Suspect]
     Active Substance: UBAMATAMAB
     Dosage: 60 MG, WEEKLY
     Route: 042
     Dates: start: 20210824
  4. CEMIPLIMAB [Suspect]
     Active Substance: CEMIPLIMAB
     Indication: Ovarian cancer
     Dosage: 350 MG, Q3W (C2D1)
     Route: 042
     Dates: start: 20210908
  5. SERTRALINE [Concomitant]
     Active Substance: SERTRALINE HYDROCHLORIDE
     Indication: Post-traumatic stress disorder
     Dosage: 100 MG, QD
     Route: 048
     Dates: start: 2013
  6. LIDOCAINE AND PRILOCAINE [Concomitant]
     Active Substance: LIDOCAINE\PRILOCAINE
     Indication: Prophylaxis
     Dosage: 2.5 %, AS NECESSARY
     Route: 061
     Dates: start: 2019
  7. LOPERAMIDE [Concomitant]
     Active Substance: LOPERAMIDE
     Indication: Diarrhoea
     Dosage: 2 MG, AS NECESSARY
     Route: 048
     Dates: start: 2013
  8. ATROPINE\DIPHENOXYLATE [Concomitant]
     Active Substance: ATROPINE\DIPHENOXYLATE
     Indication: Anxiety
     Dosage: 1 MG, BID, AS NECESSARY
     Route: 048
     Dates: start: 2013
  9. LORAZEPAM [Concomitant]
     Active Substance: LORAZEPAM
     Indication: Anxiety
     Dosage: 1 MG, BID, AS NECESSARY
     Route: 048
     Dates: start: 2013
  10. MINERALS\VITAMINS [Concomitant]
     Active Substance: MINERALS\VITAMINS
     Indication: Supplementation therapy
     Dosage: 2 DF, QD
     Route: 048
     Dates: start: 2017
  11. OMEPRAZOLE [Concomitant]
     Active Substance: OMEPRAZOLE
     Indication: Gastrooesophageal reflux disease
     Dosage: 40 MG, 30 MINS BEFORE BREAKFAST
     Route: 048
     Dates: start: 2000
  12. CHOLECALCIFEROL [Concomitant]
     Active Substance: CHOLECALCIFEROL
     Indication: Supplementation therapy
     Dosage: 1000 IU, QD
     Route: 048
     Dates: start: 2018
  13. APIXABAN [Concomitant]
     Active Substance: APIXABAN
     Indication: Prophylaxis
     Dosage: 5 MG, BID
     Route: 048
     Dates: start: 2018
  14. COLESTIPOL HYDROCHLORIDE [Concomitant]
     Active Substance: COLESTIPOL HYDROCHLORIDE
     Indication: Diarrhoea
     Dosage: 1 G, QD
     Route: 048
     Dates: start: 2013
  15. ACETAMINOPHEN [Concomitant]
     Active Substance: ACETAMINOPHEN
     Indication: Tension headache
     Dosage: 500 MG, Q6H, AS NECESSARY
     Route: 048
     Dates: start: 2013
  16. TRAMADOL [Concomitant]
     Active Substance: TRAMADOL
     Indication: Proctalgia
     Dosage: 50 MG, Q8H, AS NECESSARY
     Route: 048
     Dates: start: 2013
  17. CYCLOBENZAPRINE [Concomitant]
     Active Substance: CYCLOBENZAPRINE
     Indication: Tension headache
     Dosage: 10 MG, TID, AS NECESSARY
     Route: 048
     Dates: start: 2013
  18. VITAMIN B COMPLEX [Concomitant]
     Active Substance: CYANOCOBALAMIN\DEXPANTHENOL\NIACINAMIDE\PYRIDOXINE HYDROCHLORIDE\RIBOFLAVIN 5^-PHOSPHATE SODIUM\THIA
     Indication: Supplementation therapy
     Dosage: 1 DF, QD
     Route: 048
     Dates: start: 20200106
  19. PROCHLORPERAZINE MALEATE [Concomitant]
     Active Substance: PROCHLORPERAZINE MALEATE
     Indication: Nausea
     Dosage: 10 MG, Q6H, AS NECESSARY
     Route: 048
     Dates: start: 20200114

REACTIONS (2)
  - Febrile neutropenia [Not Recovered/Not Resolved]
  - Leukaemia [Not Recovered/Not Resolved]

NARRATIVE: CASE EVENT DATE: 20210913
